FAERS Safety Report 9803535 (Version 1)
Quarter: 2014Q1

REPORT INFORMATION
  Report Type: Spontaneous
  Country: SE (occurrence: SE)
  Receive Date: 20140108
  Receipt Date: 20140108
  Transmission Date: 20141002
  Serious: Yes (Other)
  Sender: FDA-Public Use
  Company Number: SE-VERTEX PHARMACEUTICALS INC-2014-000078

PATIENT
  Age: 35 Year
  Sex: Male

DRUGS (1)
  1. INCIVO [Suspect]
     Indication: CHRONIC HEPATITIS C
     Dates: end: 20131124

REACTIONS (1)
  - Drug reaction with eosinophilia and systemic symptoms [Unknown]
